FAERS Safety Report 6495475-0 (Version None)
Quarter: 2009Q4

REPORT INFORMATION
  Report Type: 
  Country: None (occurrence: None)
  Receive Date: 20091214
  Receipt Date: 20090629
  Transmission Date: 20100525
  Serious: No
  Sender: FDA-Public Use
  Company Number: US-BRISTOL-MYERS SQUIBB COMPANY-14682553

PATIENT
  Age: 62 Year
  Sex: Male
  Weight: 84 kg

DRUGS (3)
  1. ABILIFY [Suspect]
     Dosage: TOOK ALL 3 DOSES: 5MG,10MG, AND15MG 10MGLOT# 9D46205A 15MGLOT# 9B54592A
     Dates: start: 20090501
  2. SEROQUEL [Concomitant]
  3. DIGOXIN [Concomitant]

REACTIONS (9)
  - ATROPHY [None]
  - DIZZINESS [None]
  - DROOLING [None]
  - INCONTINENCE [None]
  - MUSCLE RIGIDITY [None]
  - NAUSEA [None]
  - PHARYNGEAL OEDEMA [None]
  - SPEECH DISORDER [None]
  - SWOLLEN TONGUE [None]
